FAERS Safety Report 7609278-4 (Version None)
Quarter: 2011Q3

REPORT INFORMATION
  Report Type: 
  Country: None (occurrence: None)
  Receive Date: 20110714
  Receipt Date: 20110711
  Transmission Date: 20111222
  Serious: Yes (Other)
  Sender: FDA-Public Use
  Company Number: US-PFIZER INC-2011064048

PATIENT
  Sex: Female

DRUGS (11)
  1. CHANTIX [Suspect]
     Dosage: SAMPLE PACKS
     Dates: start: 20090201, end: 20090401
  2. EFFEXOR [Concomitant]
     Indication: DEPRESSION
     Dosage: UNK
     Dates: start: 20060101
  3. METHADONE [Concomitant]
     Indication: BACK PAIN
     Dosage: UNK
     Dates: start: 20070101
  4. CHANTIX [Suspect]
     Dosage: STARTER PACK AND 1MG
     Dates: start: 20071101, end: 20080901
  5. CHANTIX [Suspect]
     Indication: SMOKING CESSATION THERAPY
     Dosage: STARTER PACK AND 1MG
     Dates: start: 20070301, end: 20071001
  6. TRAZODONE [Concomitant]
     Indication: DEPRESSION
     Dosage: UNK
     Dates: start: 20050101
  7. HYDROCODONE [Concomitant]
     Indication: BACK PAIN
     Dosage: UNK
     Dates: start: 20030101, end: 20100101
  8. EFFEXOR [Concomitant]
     Indication: ANXIETY
  9. CLONAZEPAM [Concomitant]
     Indication: ANXIETY
     Dosage: UNK
     Dates: start: 20060101
  10. NEURONTIN [Concomitant]
     Indication: ANXIETY
     Dosage: UNK
     Dates: start: 20050101
  11. CHANTIX [Suspect]
     Dosage: STARTER PACK AND 1MG
     Dates: start: 20090501, end: 20090810

REACTIONS (5)
  - DEPRESSION [None]
  - SUICIDAL IDEATION [None]
  - COGNITIVE DISORDER [None]
  - ANXIETY [None]
  - HALLUCINATION [None]
